FAERS Safety Report 17730906 (Version 1)
Quarter: 2020Q2

REPORT INFORMATION
  Report Type: Spontaneous
  Country: CN (occurrence: CN)
  Receive Date: 20200430
  Receipt Date: 20200430
  Transmission Date: 20200714
  Serious: Yes (Other)
  Sender: FDA-Public Use
  Company Number: CN-ROCHE-2589938

PATIENT
  Sex: Male

DRUGS (12)
  1. CALCIUM FOLINATE [Concomitant]
     Active Substance: LEUCOVORIN CALCIUM
     Indication: RECTAL ADENOCARCINOMA
     Route: 041
     Dates: start: 20160401
  2. AVASTIN [Suspect]
     Active Substance: BEVACIZUMAB
     Indication: RECTAL ADENOCARCINOMA
     Route: 065
  3. 5-FLUOROURACIL [FLUOROURACIL] [Concomitant]
     Active Substance: FLUOROURACIL
     Indication: RECTAL ADENOCARCINOMA
     Dosage: 2.4G/M2 CIV46H
     Route: 042
     Dates: start: 20160401
  4. RALTITREXED [Concomitant]
     Active Substance: RALTITREXED
     Indication: RECTAL ADENOCARCINOMA
     Route: 041
     Dates: start: 20170118, end: 20170707
  5. OXALIPLATIN. [Concomitant]
     Active Substance: OXALIPLATIN
     Indication: RECTAL ADENOCARCINOMA
     Route: 065
     Dates: start: 20140504, end: 20141018
  6. OXALIPLATIN. [Concomitant]
     Active Substance: OXALIPLATIN
     Route: 041
     Dates: start: 20170821, end: 20180207
  7. IRINOTECAN [Concomitant]
     Active Substance: IRINOTECAN
     Route: 065
     Dates: start: 20170118, end: 20170707
  8. XELODA [Suspect]
     Active Substance: CAPECITABINE
     Indication: RECTAL ADENOCARCINOMA
     Route: 048
     Dates: start: 20140504, end: 20141018
  9. REGORAFENIB. [Concomitant]
     Active Substance: REGORAFENIB
     Indication: RECTAL ADENOCARCINOMA
     Route: 041
     Dates: start: 20190120, end: 20190720
  10. CETUXIMAB. [Concomitant]
     Active Substance: CETUXIMAB
     Indication: RECTAL ADENOCARCINOMA
     Route: 041
     Dates: start: 20190725
  11. IRINOTECAN [Concomitant]
     Active Substance: IRINOTECAN
     Indication: RECTAL ADENOCARCINOMA
     Route: 065
     Dates: start: 20160401
  12. IRINOTECAN [Concomitant]
     Active Substance: IRINOTECAN
     Route: 065
     Dates: start: 20190725

REACTIONS (1)
  - Hepatic function abnormal [Unknown]
